FAERS Safety Report 6806360-6 (Version None)
Quarter: 2010Q2

REPORT INFORMATION
  Report Type: 
  Country: None (occurrence: None)
  Receive Date: 20100629
  Receipt Date: 20080403
  Transmission Date: 20101027
  Serious: Yes (Other)
  Sender: FDA-Public Use
  Company Number: US-PFIZER INC-2008007028

PATIENT
  Sex: Male
  Weight: 108 kg

DRUGS (7)
  1. ALPRAZOLAM [Suspect]
     Indication: STRESS
     Dates: start: 20080122
  2. PLAVIX [Concomitant]
  3. CRESTOR [Concomitant]
  4. MONTELUKAST SODIUM [Concomitant]
  5. NEXIUM [Concomitant]
  6. BENAZEPRIL HYDROCHLORIDE [Concomitant]
     Indication: BLOOD PRESSURE
  7. HYDROCHLOROTHIAZIDE [Concomitant]
     Indication: BLOOD PRESSURE

REACTIONS (10)
  - DISCOMFORT [None]
  - DRUG DEPENDENCE [None]
  - DRUG INEFFECTIVE [None]
  - HEADACHE [None]
  - HYPOAESTHESIA [None]
  - NEURALGIA [None]
  - PAIN [None]
  - PRURITUS [None]
  - STRESS [None]
  - WITHDRAWAL SYNDROME [None]
